FAERS Safety Report 4975273-7 (Version None)
Quarter: 2006Q2

REPORT INFORMATION
  Report Type: 
  Country: None (occurrence: None)
  Receive Date: 20060417
  Receipt Date: 20060417
  Transmission Date: 20061013
  Serious: Yes (Other)
  Sender: FDA-Public Use
  Company Number: None

PATIENT
  Age: 70 Year
  Sex: Male
  Weight: 116.1 kg

DRUGS (17)
  1. PYRIDIUM [Suspect]
  2. LISINOPRIL [Concomitant]
  3. PIOGLITAZONE HCL [Concomitant]
  4. GABAPENTIN [Concomitant]
  5. FUROSEMIDE [Concomitant]
  6. LOVASTATIN [Concomitant]
  7. SERTRALINE HCL [Concomitant]
  8. ALBUTEROL ORAL INH [Concomitant]
  9. LANSOPRAZOLE [Concomitant]
  10. PHENAZOPYRIDINE HCL TAB [Concomitant]
  11. GLIPIZIDE [Concomitant]
  12. IPRATROPIUM BROMIDE ORAL INH [Concomitant]
  13. GATIFLOXACIN [Concomitant]
  14. BUPROPION HCL [Concomitant]
  15. TRAZODONE HCL [Concomitant]
  16. FLUTICAS 250/SALMETEROL INH [Concomitant]
  17. .... [Concomitant]

REACTIONS (3)
  - EYE PRURITUS [None]
  - LACRIMATION INCREASED [None]
  - PRURITUS [None]
